FAERS Safety Report 24771471 (Version 2)
Quarter: 2025Q3

REPORT INFORMATION
  Report Type: Spontaneous
  Country: CL (occurrence: CL)
  Receive Date: 20241224
  Receipt Date: 20250815
  Transmission Date: 20251021
  Serious: No
  Sender: SANDOZ
  Company Number: CL-SANDOZ-SDZ2024CL104216

PATIENT
  Sex: Male

DRUGS (1)
  1. OMNITROPE [Suspect]
     Active Substance: SOMATROPIN
     Indication: Product used for unknown indication
     Dosage: UNK, QD
     Route: 058
     Dates: start: 202406, end: 202411

REACTIONS (3)
  - Device use issue [Unknown]
  - Expired product administered [Unknown]
  - Product use issue [Unknown]

NARRATIVE: CASE EVENT DATE: 20240601
